FAERS Safety Report 9135641 (Version 1)
Quarter: 2013Q1

REPORT INFORMATION
  Report Type: Spontaneous
  Country: US (occurrence: US)
  Receive Date: 20130219
  Receipt Date: 20130219
  Transmission Date: 20140127
  Serious: No
  Sender: FDA-Public Use
  Company Number: US-BRISTOL-MYERS SQUIBB COMPANY-16784191

PATIENT
  Age: 59 Year
  Sex: Female
  Weight: 63.49 kg

DRUGS (9)
  1. ORENCIA [Suspect]
     Indication: RHEUMATOID ARTHRITIS
     Route: 042
     Dates: start: 20120626
  2. FORTEO [Concomitant]
     Indication: OSTEOPOROSIS
  3. FOLIC ACID [Concomitant]
  4. METHOTREXATE [Concomitant]
  5. NEURONTIN [Concomitant]
  6. PROTONIX [Concomitant]
  7. TOPAMAX [Concomitant]
  8. PERCOCET [Concomitant]
  9. BACLOFEN [Concomitant]

REACTIONS (3)
  - Chest pain [Not Recovered/Not Resolved]
  - Headache [Recovered/Resolved]
  - Candida infection [Recovered/Resolved]
